FAERS Safety Report 7277459-8 (Version None)
Quarter: 2011Q1

REPORT INFORMATION
  Report Type: 
  Country: None (occurrence: None)
  Receive Date: 20110207
  Receipt Date: 20110131
  Transmission Date: 20110831
  Serious: Yes (Life-Threatening)
  Sender: FDA-Public Use
  Company Number: FR-BRISTOL-MYERS SQUIBB COMPANY-15522402

PATIENT
  Age: 73 Year
  Sex: Female

DRUGS (12)
  1. LEPONEX [Suspect]
     Indication: PSYCHOTIC DISORDER
     Route: 048
     Dates: start: 20101019, end: 20101220
  2. PARKINANE [Suspect]
     Dosage: PARKINANE SR 5 MG 1DF:1 TABS
     Route: 048
     Dates: start: 20100720, end: 20101220
  3. PREVISCAN [Concomitant]
  4. LOXEN [Concomitant]
     Dosage: LOXEN SR 50MG CAPS
  5. FUMAFER [Concomitant]
  6. TRIMEPRAZINE TARTRATE [Suspect]
     Dosage: THERALENE 4%
     Route: 048
     Dates: start: 20100730, end: 20101226
  7. MESTINON [Concomitant]
  8. DAFALGAN [Concomitant]
  9. PARIET [Concomitant]
  10. ABILIFY [Suspect]
     Indication: PSYCHOTIC DISORDER
     Route: 048
     Dates: start: 20100810
  11. IMOVANE [Concomitant]
  12. TRANSIPEG [Concomitant]

REACTIONS (2)
  - AGRANULOCYTOSIS [None]
  - HYPERTHERMIA [None]
